FAERS Safety Report 4618379-4 (Version None)
Quarter: 2005Q2

REPORT INFORMATION
  Report Type: 
  Country: None (occurrence: None)
  Receive Date: 20050315
  Receipt Date: 20040825
  Transmission Date: 20051028
  Serious: Yes (Life-Threatening)
  Sender: FDA-Public Use
  Company Number: F(LIT) 15/1004

PATIENT
  Age: 70 Year
  Sex: Female

DRUGS (2)
  1. LISINOPRIL [Suspect]
     Indication: HYPERTENSION
     Dosage: ORAL
     Route: 048
  2. ASPIRIN [Concomitant]

REACTIONS (1)
  - TONGUE OEDEMA [None]
